FAERS Safety Report 8778319 (Version 1)
Quarter: 2012Q4

REPORT INFORMATION
  Report Type: 
  Country: US (occurrence: US)
  Receive Date: 20120911
  Receipt Date: 20120911
  Transmission Date: 20130627
  Serious: Yes (Hospitalization, Other)
  Sender: FDA-Public Use
  Company Number: US-ACCORD-011106

PATIENT
  Age: 68 Year
  Sex: Male

DRUGS (5)
  1. PACLITAXEL [Suspect]
     Indication: LARYNGEAL CANCER
     Dosage: weekly, received 5 cycles
  2. PRAMIPEXOLE [Interacting]
     Indication: PARKINSON^S DISEASE
  3. CARBOPLATIN [Concomitant]
     Indication: LARYNGEAL CANCER
     Dosage: AUC-1.5 weekly, received 6 cycles
  4. CARBIDOPA/LEVODOPA [Concomitant]
     Indication: PARKINSON^S DISEASE
  5. ENTACAPONE [Concomitant]
     Indication: PARKINSON^S DISEASE

REACTIONS (5)
  - Acute psychosis [Recovered/Resolved]
  - Encephalopathy [Recovered/Resolved]
  - Drug interaction [Unknown]
  - Off label use [Unknown]
  - Mental status changes [None]
